FAERS Safety Report 20200533 (Version 4)
Quarter: 2022Q1

REPORT INFORMATION
  Report Type: Spontaneous
  Country: FR (occurrence: FR)
  Receive Date: 20211217
  Receipt Date: 20220103
  Transmission Date: 20220423
  Serious: Yes (Death, Hospitalization)
  Sender: FDA-Public Use
  Company Number: None

PATIENT
  Age: 26 Year
  Sex: Male

DRUGS (11)
  1. HALDOL [Interacting]
     Active Substance: HALOPERIDOL
     Indication: Mania
     Route: 048
     Dates: start: 20211106
  2. HALDOL [Interacting]
     Active Substance: HALOPERIDOL
     Dosage: 100/50/100 MG / D
     Route: 048
     Dates: start: 20211106
  3. RISPERDAL [Interacting]
     Active Substance: RISPERIDONE
     Indication: Mania
     Dosage: 4 MG / DAY?RISPERDAL 4 MG, COMPRIME PELLICULE SECABLE
     Route: 048
     Dates: start: 20211016, end: 20211029
  4. ARIPIPRAZOLE [Interacting]
     Active Substance: ARIPIPRAZOLE
     Indication: Mania
     Dosage: 10 MG / DAY?ARIPIPRAZOLE ARROW 10 MG, COMPRIME ORODISPERSIBLE
     Route: 048
     Dates: start: 20211026, end: 20211104
  5. ARIPIPRAZOLE [Interacting]
     Active Substance: ARIPIPRAZOLE
     Route: 048
     Dates: start: 20211026, end: 20211104
  6. CYAMEMAZINE [Interacting]
     Active Substance: CYAMEMAZINE
     Indication: Mania
     Dosage: 200 DROPS / DAY?40 MG/ML, SOLUTION BUVABLE EN GOUTTES
     Route: 048
     Dates: start: 20211016, end: 20211019
  7. LOXAPINE [Interacting]
     Active Substance: LOXAPINE
     Indication: Mania
     Dosage: 75/75/75/75 MG ?LOXAPAC, SOLUTION BUVABLE
     Route: 048
     Dates: start: 20211019, end: 20211106
  8. ZOPICLONE [Interacting]
     Active Substance: ZOPICLONE
     Indication: Mania
     Dosage: 7.5MG IN THE EVENING ?ZOPICLONE ARROW 7,5 MG, COMPRIME PELLICULE SECABLE
     Route: 048
     Dates: start: 20211019
  9. ZOPICLONE [Interacting]
     Active Substance: ZOPICLONE
     Route: 048
     Dates: start: 20211019
  10. TRIMEPRAZINE [Interacting]
     Active Substance: TRIMEPRAZINE
     Indication: Mania
     Dosage: 20 DROPS IN THE EVENING?THERALENE 4 POUR CENT, SOLUTION BUVABLE EN GOUTTES
     Route: 048
     Dates: start: 20211029
  11. VALIUM [Interacting]
     Active Substance: DIAZEPAM
     Indication: Mania
     Dosage: 15/30/30/30 DROPS / DAY?VALIUM 1 POUR CENT ROCHE, SOLUTION BUVABLE EN GOUTTE
     Route: 048
     Dates: start: 20211029

REACTIONS (2)
  - Ileus paralytic [Fatal]
  - Drug interaction [Fatal]

NARRATIVE: CASE EVENT DATE: 20211108
